FAERS Safety Report 7732397-9 (Version None)
Quarter: 2011Q3

REPORT INFORMATION
  Report Type: 
  Country: None (occurrence: None)
  Receive Date: 20110906
  Receipt Date: 20110901
  Transmission Date: 20111222
  Serious: Yes (Life-Threatening, Hospitalization)
  Sender: FDA-Public Use
  Company Number: FR-PFIZER INC-2011190169

PATIENT
  Age: 66 Year
  Sex: Male

DRUGS (8)
  1. RAMIPRIL [Concomitant]
     Indication: CORONARY ARTERY DISEASE
     Dosage: UNK
  2. ATARAX [Concomitant]
     Dosage: UNK
     Route: 048
  3. LYRICA [Suspect]
     Indication: DIABETIC NEUROPATHY
     Dosage: UNK
     Dates: start: 20110518
  4. MORPHINE SULFATE [Concomitant]
     Dosage: UNK
     Route: 048
  5. NEURONTIN [Concomitant]
     Indication: DIABETIC NEUROPATHY
     Dosage: UNK
     Route: 048
     Dates: start: 20110401, end: 20110518
  6. ACUPAN [Concomitant]
     Dosage: UNK
     Route: 048
  7. PARACETAMOL [Concomitant]
     Dosage: UNK
     Route: 042
  8. ACTRAPID [Concomitant]
     Indication: TYPE 2 DIABETES MELLITUS
     Dosage: UNK
     Route: 030

REACTIONS (1)
  - NEUTROPENIA [None]
